FAERS Safety Report 17845021 (Version 1)
Quarter: 2020Q2

REPORT INFORMATION
  Report Type: Spontaneous
  Country: US (occurrence: US)
  Receive Date: 20200601
  Receipt Date: 20200601
  Transmission Date: 20200714
  Serious: No
  Sender: FDA-Public Use
  Company Number: US-ELI_LILLY_AND_COMPANY-US202005006095

PATIENT
  Sex: Male

DRUGS (4)
  1. HUMALOG [Suspect]
     Active Substance: INSULIN LISPRO
     Dosage: 12 U, TID
     Route: 058
  2. NOVOLIN 70/30 [Suspect]
     Active Substance: INSULIN HUMAN
     Indication: TYPE 2 DIABETES MELLITUS
     Dosage: UNK UNK, PRN (DOSE AS WITH MEALS AND CORRECTIVE SCALE AS NEEDED)
     Route: 065
  3. HUMALOG [Suspect]
     Active Substance: INSULIN LISPRO
     Indication: TYPE 2 DIABETES MELLITUS
     Dosage: 12 U, TID
     Route: 058
     Dates: start: 201001
  4. HUMALOG [Suspect]
     Active Substance: INSULIN LISPRO
     Dosage: 12 U, TID
     Route: 058

REACTIONS (2)
  - Blood glucose increased [Recovering/Resolving]
  - Renal impairment [Unknown]
